FAERS Safety Report 6187908-4 (Version None)
Quarter: 2009Q2

REPORT INFORMATION
  Report Type: 
  Country: None (occurrence: None)
  Receive Date: 20090511
  Receipt Date: 20090511
  Transmission Date: 20091009
  Serious: Yes (Other)
  Sender: FDA-Public Use
  Company Number: None

PATIENT
  Sex: Female
  Weight: 62.73 kg

DRUGS (13)
  1. TRAMADOL HCL [Suspect]
     Dosage: 50MG TABLET 50 MG Q6H ORAL
     Route: 048
     Dates: start: 20090313, end: 20090508
  2. ASPIRIN ENTERIC COATED (CHILDRENS) [Concomitant]
  3. AZELASTINE 0.05% OPTHALMIC SOLUTION [Concomitant]
  4. BENZOYL PEROXIDE WASH [Concomitant]
  5. CALCIUM + D [Concomitant]
  6. CLARITIN [Concomitant]
  7. COLACE (DOCUSATE SODIUM) [Concomitant]
  8. FLUTICASONE PROPIONATE [Concomitant]
  9. FOSAMAX [Concomitant]
  10. OMEPRAZOLE [Concomitant]
  11. PREMARIN [Concomitant]
  12. SENNA [Concomitant]
  13. VITAMIN D3 (CHOLECALCIFEROL) [Concomitant]

REACTIONS (2)
  - HEADACHE [None]
  - NAUSEA [None]
